FAERS Safety Report 15125661 (Version 2)
Quarter: 2018Q4

REPORT INFORMATION
  Report Type: Spontaneous
  Country: JP (occurrence: JP)
  Receive Date: 20180710
  Receipt Date: 20181009
  Transmission Date: 20190204
  Serious: Yes (Hospitalization, Other)
  Sender: FDA-Public Use
  Company Number: JP-ELI_LILLY_AND_COMPANY-JP201804006801

PATIENT
  Age: 38 Year
  Sex: Male
  Weight: 53 kg

DRUGS (15)
  1. AZILVA [Concomitant]
     Active Substance: AZILSARTAN KAMEDOXOMIL
     Indication: HYPERTENSION
     Route: 048
  2. BIO-THREE [Concomitant]
     Active Substance: HERBALS
     Indication: DIARRHOEA
     Route: 048
  3. AMLODIPINE [Concomitant]
     Active Substance: AMLODIPINE BESYLATE
     Indication: HYPERTENSION
     Route: 048
  4. FLUOROURACIL. [Suspect]
     Active Substance: FLUOROURACIL
     Dosage: 600 MG, CYCLICAL
     Route: 040
     Dates: start: 20180416
  5. FLUOROURACIL. [Suspect]
     Active Substance: FLUOROURACIL
     Dosage: 3700 UNK, UNK
     Route: 042
     Dates: start: 20180416
  6. MECOBALAMIN [Concomitant]
     Active Substance: METHYLCOBALAMIN
  7. CYRAMZA [Suspect]
     Active Substance: RAMUCIRUMAB
     Indication: COLON CANCER RECURRENT
     Dosage: 420 MG, CYCLICAL
     Route: 042
     Dates: start: 20180202, end: 20180302
  8. IRINOTECAN [Suspect]
     Active Substance: IRINOTECAN
     Dosage: 230 MG, UNK
     Dates: start: 20180416
  9. FLUOROURACIL. [Suspect]
     Active Substance: FLUOROURACIL
     Indication: COLON CANCER RECURRENT
     Dosage: 600 MG, CYCLICAL
     Route: 040
     Dates: start: 20180202, end: 20180302
  10. LASIX [Concomitant]
     Active Substance: FUROSEMIDE
     Indication: OEDEMA
     Route: 048
  11. FLUOROURACIL. [Suspect]
     Active Substance: FLUOROURACIL
     Dosage: 3700 UNK, UNK
     Route: 042
     Dates: start: 20180202, end: 20180302
  12. IRINOTECAN [Suspect]
     Active Substance: IRINOTECAN
     Indication: COLON CANCER RECURRENT
     Dosage: 230 MG, UNK
     Dates: start: 20180202, end: 20180302
  13. LEVOFOLINATE CALCIUM [Suspect]
     Active Substance: LEVOLEUCOVORIN CALCIUM
     Indication: COLON CANCER RECURRENT
     Dosage: 300 MG, CYCLICAL
     Dates: start: 20180202, end: 20180302
  14. LEVOFOLINATE CALCIUM [Suspect]
     Active Substance: LEVOLEUCOVORIN CALCIUM
     Dosage: 300 MG, CYCLICAL
     Dates: start: 20180416
  15. LASIX [Concomitant]
     Active Substance: FUROSEMIDE
     Indication: ASCITES

REACTIONS (3)
  - Nephrotic syndrome [Recovered/Resolved]
  - Hypothyroidism [Unknown]
  - Malignant neoplasm progression [Unknown]

NARRATIVE: CASE EVENT DATE: 2018
